FAERS Safety Report 25798922 (Version 1)
Quarter: 2025Q3

REPORT INFORMATION
  Report Type: Spontaneous
  Country: US (occurrence: US)
  Receive Date: 20250913
  Receipt Date: 20250913
  Transmission Date: 20251020
  Serious: No
  Sender: NOVARTIS
  Company Number: US-002147023-NVSC2025US140683

PATIENT
  Age: 44 Year
  Sex: Female

DRUGS (1)
  1. ILARIS [Suspect]
     Active Substance: CANAKINUMAB
     Indication: Product used for unknown indication
     Dosage: 50 MG, Q4W
     Route: 065

REACTIONS (4)
  - Pyrexia [Unknown]
  - Injection site pain [Unknown]
  - Bone pain [Unknown]
  - Body temperature increased [Unknown]

NARRATIVE: CASE EVENT DATE: 20250810
